FAERS Safety Report 14290736 (Version 6)
Quarter: 2018Q1

REPORT INFORMATION
  Report Type: Spontaneous
  Country: US (occurrence: US)
  Receive Date: 20171215
  Receipt Date: 20180125
  Transmission Date: 20180509
  Serious: Yes (Death, Hospitalization, Other)
  Sender: FDA-Public Use
  Company Number: US-GLAXOSMITHKLINE-US2017GSK192635

PATIENT
  Age: 83 Year
  Sex: Female

DRUGS (10)
  1. LETAIRIS [Concomitant]
     Active Substance: AMBRISENTAN
  2. FLOLAN [Suspect]
     Active Substance: EPOPROSTENOL SODIUM
     Dosage: UNK
     Route: 042
  3. FLOLAN [Suspect]
     Active Substance: EPOPROSTENOL SODIUM
     Indication: PULMONARY ARTERIAL HYPERTENSION
     Dosage: 26 DF, CO
     Dates: start: 20120112
  4. ADEMPAS [Concomitant]
     Active Substance: RIOCIGUAT
  5. WARFARIN [Concomitant]
     Active Substance: WARFARIN
  6. FLOLAN [Suspect]
     Active Substance: EPOPROSTENOL SODIUM
     Indication: PULMONARY ARTERIAL HYPERTENSION
     Dosage: UNK
     Dates: start: 20170606
  7. ESBRIET [Suspect]
     Active Substance: PIRFENIDONE
     Indication: PRODUCT USED FOR UNKNOWN INDICATION
  8. SILDENAFIL CITRATE. [Concomitant]
     Active Substance: SILDENAFIL CITRATE
  9. AMLODIPINE [Concomitant]
     Active Substance: AMLODIPINE BESYLATE
  10. FLOLAN [Suspect]
     Active Substance: EPOPROSTENOL SODIUM
     Dosage: 26 NG/KG/MIN, CO
     Route: 042

REACTIONS (14)
  - Diarrhoea [Unknown]
  - Acute kidney injury [Unknown]
  - Cardioversion [Unknown]
  - Death [Fatal]
  - Atrial flutter [Unknown]
  - Heart rate irregular [Unknown]
  - Syncope [Unknown]
  - Pericardial effusion [Unknown]
  - Urinary tract infection [Unknown]
  - Clostridium difficile infection [Unknown]
  - Nausea [Unknown]
  - Hypotension [Unknown]
  - Atrial fibrillation [Unknown]
  - Cardiac ablation [Unknown]

NARRATIVE: CASE EVENT DATE: 201712
